FAERS Safety Report 13411440 (Version 1)
Quarter: 2017Q2

REPORT INFORMATION
  Report Type: Spontaneous
  Country: US (occurrence: US)
  Receive Date: 20170406
  Receipt Date: 20170406
  Transmission Date: 20170830
  Serious: No
  Sender: FDA-Public Use
  Company Number: US-JNJFOC-20170124256

PATIENT
  Age: 41 Year
  Sex: Female

DRUGS (1)
  1. RISPERDAL CONSTA [Suspect]
     Active Substance: RISPERIDONE
     Indication: PRODUCT USED FOR UNKNOWN INDICATION
     Route: 030
     Dates: start: 201505

REACTIONS (3)
  - Liquid product physical issue [Unknown]
  - Self-medication [Unknown]
  - Syringe issue [Unknown]

NARRATIVE: CASE EVENT DATE: 20170124
